FAERS Safety Report 10649128 (Version 2)
Quarter: 2015Q1

REPORT INFORMATION
  Report Type: Spontaneous
  Country: US (occurrence: US)
  Receive Date: 20141212
  Receipt Date: 20150106
  Transmission Date: 20150720
  Serious: Yes (Life-Threatening)
  Sender: FDA-Public Use
  Company Number: US-009507513-1412USA005803

PATIENT
  Age: 61 Year
  Sex: Female

DRUGS (3)
  1. HEXADROL [Suspect]
     Active Substance: DEXAMETHASONE
     Dosage: 2 MG, Q12H
     Route: 042
  2. HEXADROL [Suspect]
     Active Substance: DEXAMETHASONE
     Indication: SPINAL CORD INJURY
     Dosage: 4 MG, Q6H, FOR 5 DOSES
     Route: 042
  3. HEXADROL [Suspect]
     Active Substance: DEXAMETHASONE
     Dosage: 2 MG, Q6H
     Route: 042

REACTIONS (1)
  - Adrenal insufficiency [Recovered/Resolved]
